FAERS Safety Report 8345727-4 (Version None)
Quarter: 2012Q2

REPORT INFORMATION
  Report Type: 
  Country: None (occurrence: None)
  Receive Date: 20120508
  Receipt Date: 20120425
  Transmission Date: 20120825
  Serious: Yes (Hospitalization)
  Sender: FDA-Public Use
  Company Number: ES-ELI_LILLY_AND_COMPANY-ES201204009119

PATIENT
  Sex: Female
  Weight: 80 kg

DRUGS (12)
  1. FORTEO [Suspect]
     Indication: OSTEOPOROSIS
     Dosage: 20 UG, QD
     Route: 058
     Dates: start: 20120201
  2. ACETAMINOPHEN [Concomitant]
     Dosage: UNK
     Route: 042
     Dates: start: 20120404
  3. CIPROFLOXACINO [Concomitant]
     Dosage: UNK, UNKNOWN
     Route: 042
     Dates: start: 20120424
  4. FENOFIBRATE [Concomitant]
     Indication: PAIN
     Dosage: 1 DF, QD
     Route: 048
  5. NORVASC [Concomitant]
     Indication: HYPERTENSION
     Dosage: 1 DF, QD
     Route: 048
  6. INSULATARD NPH HUMAN [Concomitant]
     Indication: DIABETES MELLITUS
     Dosage: UNK, OTHER
     Route: 058
  7. TRAMADOL HYDROCHLORIDE [Concomitant]
     Indication: PAIN
     Dosage: UNK, PRN
     Route: 048
  8. ACETAMINOPHEN [Concomitant]
     Indication: PAIN
     Dosage: 1 DF, PRN
     Route: 048
     Dates: end: 20120424
  9. IBUPROFEN [Concomitant]
     Indication: PAIN
     Dosage: UNK, PRN
     Route: 048
  10. CIPROFLOXACINO [Concomitant]
     Dosage: 1 DF, BID
     Route: 048
     Dates: end: 20120424
  11. TIRODRIL [Concomitant]
     Indication: HYPOTHYROIDISM
     Dosage: 1 DF, QD
     Route: 048
  12. TRILEPTAL [Concomitant]
     Indication: EPILEPSY
     Dosage: 1 DF, BID
     Route: 048

REACTIONS (1)
  - BILIARY COLIC [None]
